FAERS Safety Report 8080626-7 (Version None)
Quarter: 2012Q1

REPORT INFORMATION
  Report Type: 
  Country: None (occurrence: None)
  Receive Date: 20120130
  Receipt Date: 20120127
  Transmission Date: 20120608
  Serious: Yes (Other)
  Sender: FDA-Public Use
  Company Number: CH-BAYER-2012-008960

PATIENT

DRUGS (1)
  1. NEXAVAR [Suspect]

REACTIONS (2)
  - RETINAL HAEMORRHAGE [None]
  - OPTIC ISCHAEMIC NEUROPATHY [None]
